FAERS Safety Report 5532170-6 (Version None)
Quarter: 2007Q4

REPORT INFORMATION
  Report Type: 
  Country: None (occurrence: None)
  Receive Date: 20071203
  Receipt Date: 20071128
  Transmission Date: 20080405
  Serious: Yes (Hospitalization)
  Sender: FDA-Public Use
  Company Number: JP-ASTRAZENECA-2007AP07141

PATIENT
  Age: 73 Year
  Sex: Male

DRUGS (11)
  1. TENORMIN [Suspect]
     Indication: HYPERTENSION
     Route: 048
     Dates: start: 20061130, end: 20070926
  2. SUNRYTHM [Suspect]
     Route: 048
     Dates: start: 20070419, end: 20070926
  3. DOGMATYL [Suspect]
     Route: 048
     Dates: start: 20070717, end: 20071018
  4. SEDIEL [Suspect]
     Indication: DEPRESSION
     Route: 048
     Dates: start: 20070815, end: 20070926
  5. AMOXAPINE [Suspect]
     Route: 048
     Dates: start: 20070815, end: 20070926
  6. FAMOTIDINE [Suspect]
     Dosage: DOSE UNKNOWN
     Route: 048
  7. DEPAS [Suspect]
     Dosage: DOSE UNKNOWN
     Route: 048
  8. BUFFERIN [Suspect]
     Dosage: DOSE UNKNOWN
     Route: 048
  9. MAGMITT [Suspect]
     Dosage: DOSE UNKNOWN
     Route: 048
  10. MICARDIS [Suspect]
     Dosage: DOSE UNKNOWN
     Route: 048
  11. MUCOSTA [Suspect]
     Dosage: DOSE UNKNOWN
     Route: 048

REACTIONS (1)
  - HEPATIC FUNCTION ABNORMAL [None]
